FAERS Safety Report 22693724 (Version 11)
Quarter: 2024Q3

REPORT INFORMATION
  Report Type: Report from Study
  Country: GB (occurrence: GB)
  Receive Date: 20230711
  Receipt Date: 20240918
  Transmission Date: 20241016
  Serious: Yes (Hospitalization, Other)
  Sender: ABBVIE
  Company Number: GB-ABBVIE-5299829

PATIENT
  Age: 63 Year
  Sex: Male

DRUGS (32)
  1. CARBIDOPA\LEVODOPA [Suspect]
     Active Substance: CARBIDOPA\LEVODOPA
     Indication: Parkinson^s disease
     Dosage: MD 10.5 MLS; CR 3.2 MLS AND ED 2.5 MLS,
     Route: 050
     Dates: start: 202306, end: 202306
  2. CARBIDOPA\LEVODOPA [Suspect]
     Active Substance: CARBIDOPA\LEVODOPA
     Dosage: MD 10.5 MLS; CR 3.0 MLS AND ED 2.5 MLS,
     Route: 050
     Dates: start: 202306, end: 202306
  3. CARBIDOPA\LEVODOPA [Suspect]
     Active Substance: CARBIDOPA\LEVODOPA
     Dosage: MD: 10.3, CR: 2.8 AND ED: 2.5  20MG/5MG,
     Route: 050
     Dates: start: 2023, end: 20230714
  4. CARBIDOPA\LEVODOPA [Suspect]
     Active Substance: CARBIDOPA\LEVODOPA
     Dosage: MD: 10.3MLS, CR: 2.6MLS, ED:2.5MLS, 20MG/5MG?LAST ADMIN DATE: JUL 2023
     Route: 050
     Dates: start: 202307
  5. CARBIDOPA\LEVODOPA [Suspect]
     Active Substance: CARBIDOPA\LEVODOPA
     Dosage: DUODOPA INFUSION - 2.8MLS / HR CONTINUOUS RATE, EXTRA DOSE 2.5 AND BOOST 10.3?DRUG END DATE JUL 2023
     Route: 050
     Dates: start: 20230714
  6. CARBIDOPA\LEVODOPA [Suspect]
     Active Substance: CARBIDOPA\LEVODOPA
     Dosage: DUODOPA INFUSION - 2.8MLS / HR CONTINUOUS RATE, EXTRA DOSE 2.5 AND BOOST 10.3
     Route: 050
     Dates: start: 2023, end: 2023
  7. CARBIDOPA\LEVODOPA [Suspect]
     Active Substance: CARBIDOPA\LEVODOPA
     Dosage: MD:10.3, CR:  2.8, ED:2.5, 20MG/5MG?LAST ADMIN DATE: 2023
     Route: 050
     Dates: start: 202306
  8. CARBIDOPA\LEVODOPA [Suspect]
     Active Substance: CARBIDOPA\LEVODOPA
     Dosage: CR: 2.9MLS  ED: 2.5MLS
     Route: 050
     Dates: start: 202407, end: 202407
  9. CARBIDOPA\LEVODOPA [Suspect]
     Active Substance: CARBIDOPA\LEVODOPA
     Dosage: MD 10.5 MLS; CR 3.0 MLS AND ED 2.5 MLS
     Route: 050
     Dates: start: 2023, end: 2023
  10. CARBIDOPA\LEVODOPA [Suspect]
     Active Substance: CARBIDOPA\LEVODOPA
     Dosage: CR:  3.1, FIRST ADMIN DATE - 2024
     Route: 050
  11. CARBIDOPA\LEVODOPA [Suspect]
     Active Substance: CARBIDOPA\LEVODOPA
     Dosage: CR 3.3MLS, LAST ADMIN DATE - 2024
     Route: 050
     Dates: start: 202407
  12. CARBIDOPA\LEVODOPA [Suspect]
     Active Substance: CARBIDOPA\LEVODOPA
     Dosage: CR:  3.1, FIRST ADMIN DATE - 2024
     Route: 050
     Dates: end: 202407
  13. ZOPICLONE [Concomitant]
     Active Substance: ZOPICLONE
     Indication: Product used for unknown indication
     Dosage: 3.75 UG
  14. RASAGILINE [Concomitant]
     Active Substance: RASAGILINE\RASAGILINE MESYLATE
     Indication: Product used for unknown indication
  15. MIRTAZAPINE [Concomitant]
     Active Substance: MIRTAZAPINE
     Indication: Product used for unknown indication
  16. ROPINIROLE [Suspect]
     Active Substance: ROPINIROLE
     Indication: Product used for unknown indication
     Route: 065
  17. ROPINIROLE [Suspect]
     Active Substance: ROPINIROLE
     Indication: Product used for unknown indication
     Route: 065
  18. ACETAMINOPHEN [Concomitant]
     Active Substance: ACETAMINOPHEN
     Indication: Pain
  19. TRAMADOL [Concomitant]
     Active Substance: TRAMADOL\TRAMADOL HYDROCHLORIDE
     Indication: Pain
  20. BENSERAZIDE HYDROCHLORIDE\LEVODOPA [Concomitant]
     Active Substance: BENSERAZIDE HYDROCHLORIDE\LEVODOPA
     Indication: Product used for unknown indication
     Dosage: 12.5/50MG 1 OR 2
  21. BENSERAZIDE HYDROCHLORIDE\LEVODOPA [Concomitant]
     Active Substance: BENSERAZIDE HYDROCHLORIDE\LEVODOPA
     Indication: Product used for unknown indication
     Dosage: 25/100MG
  22. BENSERAZIDE HYDROCHLORIDE\LEVODOPA [Concomitant]
     Active Substance: BENSERAZIDE HYDROCHLORIDE\LEVODOPA
     Indication: Product used for unknown indication
     Dosage: FREQUENCY TEXT: 6AM
  23. BENSERAZIDE HYDROCHLORIDE\LEVODOPA [Concomitant]
     Active Substance: BENSERAZIDE HYDROCHLORIDE\LEVODOPA
     Indication: Product used for unknown indication
     Dosage: 62.5MGS
  24. BENSERAZIDE HYDROCHLORIDE\LEVODOPA [Concomitant]
     Active Substance: BENSERAZIDE HYDROCHLORIDE\LEVODOPA
     Indication: Product used for unknown indication
     Dosage: FREQUENCY TEXT: AT 2 PM?62.5 G
  25. AMANTADINE [Concomitant]
     Active Substance: AMANTADINE
     Indication: Product used for unknown indication
  26. BENSERAZIDE HYDROCHLORIDE\LEVODOPA [Concomitant]
     Active Substance: BENSERAZIDE HYDROCHLORIDE\LEVODOPA
     Indication: Product used for unknown indication
     Dosage: 25/100MG?MR
  27. OPICAPONE [Concomitant]
     Active Substance: OPICAPONE
     Indication: Product used for unknown indication
     Dates: end: 20230705
  28. ASPIRIN [Concomitant]
     Active Substance: ASPIRIN
     Indication: Pain
     Dates: start: 20230716
  29. VITAMIN B12 [Concomitant]
     Active Substance: CYANOCOBALAMIN
     Indication: Product used for unknown indication
  30. IPINNIA XL [Concomitant]
     Indication: Product used for unknown indication
     Dosage: FREQUENCY TEXT: 6AM, 12MGS 2PM
  31. NAPROXEN [Concomitant]
     Active Substance: NAPROXEN
     Indication: Product used for unknown indication
  32. BENSERAZIDE HYDROCHLORIDE\LEVODOPA [Concomitant]
     Active Substance: BENSERAZIDE HYDROCHLORIDE\LEVODOPA
     Indication: Product used for unknown indication
     Dosage: 12.5/50MG,?DISPERSIBLE

REACTIONS (52)
  - Pneumoperitoneum [Not Recovered/Not Resolved]
  - Ligament sprain [Not Recovered/Not Resolved]
  - Weight decreased [Unknown]
  - Jaw disorder [Recovered/Resolved]
  - Stoma site erythema [Recovering/Resolving]
  - Malaise [Unknown]
  - Dizziness [Recovered/Resolved]
  - Pain in extremity [Recovered/Resolved]
  - Limb discomfort [Unknown]
  - Speech disorder [Unknown]
  - Medical device site discomfort [Recovering/Resolving]
  - Fatigue [Recovered/Resolved]
  - Therapeutic product effect incomplete [Not Recovered/Not Resolved]
  - Freezing phenomenon [Recovered/Resolved]
  - Dyskinesia [Recovered/Resolved]
  - Insomnia [Recovered/Resolved]
  - Parkinson^s disease [Not Recovered/Not Resolved]
  - Musculoskeletal disorder [Unknown]
  - Asthenia [Not Recovered/Not Resolved]
  - Dyspnoea [Unknown]
  - Incorrect dose administered [Unknown]
  - Weight decreased [Recovered/Resolved]
  - Depression [Recovered/Resolved]
  - Stoma site erythema [Recovered/Resolved]
  - Pain [Not Recovered/Not Resolved]
  - Hospitalisation [Recovered/Resolved]
  - Fall [Recovered/Resolved]
  - Deformity [Unknown]
  - Fall [Unknown]
  - Depressed mood [Recovered/Resolved]
  - Stoma site discharge [Not Recovered/Not Resolved]
  - Abnormal dreams [Not Recovered/Not Resolved]
  - Swelling [Unknown]
  - Unevaluable event [Unknown]
  - Hypoaesthesia [Recovered/Resolved]
  - Unevaluable event [Unknown]
  - Gait inability [Recovering/Resolving]
  - Hypoaesthesia [Not Recovered/Not Resolved]
  - Unevaluable event [Unknown]
  - Mobility decreased [Unknown]
  - Jaw disorder [Not Recovered/Not Resolved]
  - Freezing phenomenon [Recovering/Resolving]
  - Weight decreased [Recovering/Resolving]
  - Fatigue [Unknown]
  - Drug ineffective [Unknown]
  - Hypoaesthesia [Recovering/Resolving]
  - Dystonia [Recovering/Resolving]
  - Hypophagia [Unknown]
  - Decreased appetite [Unknown]
  - Parkinson^s disease [Not Recovered/Not Resolved]
  - Dystonia [Not Recovered/Not Resolved]
  - Pain in extremity [Recovering/Resolving]

NARRATIVE: CASE EVENT DATE: 20230101
